FAERS Safety Report 18473511 (Version 1)
Quarter: 2020Q4

REPORT INFORMATION
  Report Type: Spontaneous
  Country: US (occurrence: US)
  Receive Date: 20201106
  Receipt Date: 20201106
  Transmission Date: 20210114
  Serious: No
  Sender: FDA-Public Use
  Company Number: None

PATIENT
  Age: 63 Year
  Sex: Female

DRUGS (10)
  1. PAXIL [Concomitant]
     Active Substance: PAROXETINE HYDROCHLORIDE
  2. XANAX [Concomitant]
     Active Substance: ALPRAZOLAM
  3. ORENCIA [Suspect]
     Active Substance: ABATACEPT
     Indication: PSORIASIS
     Dosage: ?          OTHER FREQUENCY:WEEKLY;?
     Route: 058
     Dates: start: 20200921
  4. BIOTIN [Concomitant]
     Active Substance: BIOTIN
  5. AMOXICILLIN. [Concomitant]
     Active Substance: AMOXICILLIN
  6. ARAVA [Concomitant]
     Active Substance: LEFLUNOMIDE
  7. CALICUM/MAGN TAB+ZINC [Concomitant]
  8. DIOVAN [Concomitant]
     Active Substance: VALSARTAN
  9. GARLIC. [Concomitant]
     Active Substance: GARLIC
  10. VITAMIN D3 [Concomitant]
     Active Substance: CHOLECALCIFEROL

REACTIONS (2)
  - Therapy interrupted [None]
  - Surgery [None]

NARRATIVE: CASE EVENT DATE: 20201013
